FAERS Safety Report 4311066-1 (Version None)
Quarter: 2004Q1

REPORT INFORMATION
  Report Type: 
  Country: None (occurrence: None)
  Receive Date: 20040302
  Receipt Date: 20040217
  Transmission Date: 20041129
  Serious: Yes (Hospitalization)
  Sender: FDA-Public Use
  Company Number: SE-JNJFOC-20040203547

PATIENT
  Age: 80 Year
  Sex: Male

DRUGS (5)
  1. GALANTAMINE (GALANTAMINE) TABLETS [Suspect]
     Indication: SENILE DEMENTIA
     Dosage: 8 MG, 2 IN 1 DAY, ORAL
     Route: 048
     Dates: start: 20031211, end: 20040109
  2. HUMIRA [Suspect]
     Indication: RHEUMATOID ARTHRITIS
     Dosage: 40 MG, 1 IN 1 DAY, INTRAVENOUS
     Route: 042
     Dates: start: 20031223, end: 20031223
  3. PREDNISOLONE [Concomitant]
  4. NAPROSYN (NAPROSYN) TABLETS [Concomitant]
  5. CALCICHEW (CALCIUM CARBONATE) CHEWABLE TABLETS [Concomitant]

REACTIONS (4)
  - ECZEMA [None]
  - EXANTHEM [None]
  - RASH GENERALISED [None]
  - RASH PUSTULAR [None]
